FAERS Safety Report 5031033-2 (Version None)
Quarter: 2006Q2

REPORT INFORMATION
  Report Type: 
  Country: None (occurrence: None)
  Receive Date: 20060619
  Receipt Date: 20060619
  Transmission Date: 20061013
  Serious: Yes (Death)
  Sender: FDA-Public Use
  Company Number: None

PATIENT
  Age: 31 Year
  Sex: Female
  Weight: 74.3899 kg

DRUGS (3)
  1. PSEUDOEPHEDRINE HCL [Suspect]
  2. NYQUIL [Suspect]
     Indication: UPPER RESPIRATORY TRACT INFECTION
     Dosage: TOTAL ESTIMATED TO BE 90 MG ALL P.O.
     Route: 048
     Dates: start: 19990710, end: 19990714
  3. SUDAFED 12 HOUR [Suspect]
     Dosage: DAILY OR PSEUDOEPHEDRINE PO
     Route: 048

REACTIONS (5)
  - ARRHYTHMIA [None]
  - BLOOD CATECHOLAMINES INCREASED [None]
  - CARDIAC FAILURE CONGESTIVE [None]
  - CARDIOMYOPATHY [None]
  - SHOCK [None]
